FAERS Safety Report 13866025 (Version 1)
Quarter: 2017Q3

REPORT INFORMATION
  Report Type: Spontaneous
  Country: US (occurrence: US)
  Receive Date: 20170814
  Receipt Date: 20170814
  Transmission Date: 20171127
  Serious: Yes (Hospitalization)
  Sender: FDA-Public Use
  Company Number: US-ROCHE-1846458

PATIENT
  Age: 68 Year
  Sex: Female
  Weight: 107.14 kg

DRUGS (16)
  1. ZOLPIDEM [Concomitant]
     Active Substance: ZOLPIDEM\ZOLPIDEM TARTRATE
     Route: 048
     Dates: start: 201604
  2. METRONIDAZOLE. [Concomitant]
     Active Substance: METRONIDAZOLE
     Route: 065
  3. ACTEMRA [Suspect]
     Active Substance: TOCILIZUMAB
     Indication: RHEUMATOID ARTHRITIS
     Route: 042
     Dates: start: 20130829, end: 20160805
  4. DICYCLOMINE [Concomitant]
     Active Substance: DICYCLOMINE HYDROCHLORIDE
  5. SYNTHROID [Concomitant]
     Active Substance: LEVOTHYROXINE SODIUM
     Route: 065
     Dates: start: 201008
  6. PROTONIX [Concomitant]
     Active Substance: PANTOPRAZOLE SODIUM
     Route: 065
  7. AZULFIDINE [Concomitant]
     Active Substance: SULFASALAZINE
     Indication: RHEUMATOID ARTHRITIS
     Route: 065
     Dates: start: 200903
  8. AZATHIOPRINE. [Concomitant]
     Active Substance: AZATHIOPRINE
     Indication: RHEUMATOID ARTHRITIS
     Route: 048
     Dates: start: 201501
  9. DICLOFENAC [Concomitant]
     Active Substance: DICLOFENAC
     Route: 048
     Dates: start: 201402
  10. LISINOPRIL. [Concomitant]
     Active Substance: LISINOPRIL
     Route: 065
  11. LOVENOX [Concomitant]
     Active Substance: ENOXAPARIN SODIUM
     Route: 065
  12. NORVASC [Concomitant]
     Active Substance: AMLODIPINE BESYLATE
     Route: 065
  13. FLEXERIL [Concomitant]
     Active Substance: CYCLOBENZAPRINE HYDROCHLORIDE
     Indication: MUSCLE SPASMS
     Route: 065
     Dates: start: 201402
  14. PERCOCET [Concomitant]
     Active Substance: ACETAMINOPHEN\OXYCODONE HYDROCHLORIDE
     Indication: PAIN
     Route: 065
  15. LEVOTHYROXIN [Concomitant]
     Active Substance: LEVOTHYROXINE
     Route: 065
  16. CIPRO [Concomitant]
     Active Substance: CIPROFLOXACIN HYDROCHLORIDE
     Route: 065

REACTIONS (2)
  - Intestinal perforation [Unknown]
  - Diverticulitis [Not Recovered/Not Resolved]

NARRATIVE: CASE EVENT DATE: 20160826
